FAERS Safety Report 10573160 (Version 1)
Quarter: 2014Q4

REPORT INFORMATION
  Report Type: Spontaneous
  Country: US (occurrence: US)
  Receive Date: 20141110
  Receipt Date: 20141110
  Transmission Date: 20150529
  Serious: No
  Sender: FDA-Public Use
  Company Number: US-BAYER-2014-165673

PATIENT
  Age: 37 Year
  Sex: Female

DRUGS (1)
  1. BETASERON [Suspect]
     Active Substance: INTERFERON BETA-1B
     Indication: MULTIPLE SCLEROSIS
     Dosage: 0.3 MG, DAILY DOSE
     Route: 058
     Dates: start: 201410

REACTIONS (4)
  - Weight increased [None]
  - Influenza like illness [None]
  - Alopecia [None]
  - Menstruation irregular [None]
